FAERS Safety Report 4422966-6 (Version None)
Quarter: 2004Q3

REPORT INFORMATION
  Report Type: 
  Country: None (occurrence: None)
  Receive Date: 20040809
  Receipt Date: 20040809
  Transmission Date: 20050211
  Serious: Yes (Life-Threatening, Hospitalization)
  Sender: FDA-Public Use
  Company Number: None

PATIENT
  Age: 33 Year
  Sex: Male
  Weight: 94 kg

DRUGS (1)
  1. OLANZAPINE [Suspect]
     Indication: BIPOLAR DISORDER
     Dosage: PO HS
     Route: 048

REACTIONS (5)
  - HEADACHE [None]
  - HYPERGLYCAEMIA [None]
  - MENTAL STATUS CHANGES [None]
  - POLYDIPSIA [None]
  - POLYURIA [None]
